FAERS Safety Report 9464856 (Version 1)
Quarter: 2013Q3

REPORT INFORMATION
  Report Type: Spontaneous
  Country: US (occurrence: US)
  Receive Date: 20130819
  Receipt Date: 20130819
  Transmission Date: 20140515
  Serious: No
  Sender: FDA-Public Use
  Company Number: US-PFIZER INC-2013238058

PATIENT
  Age: 95 Year
  Sex: Female
  Weight: 54.42 kg

DRUGS (5)
  1. ADVIL [Suspect]
     Indication: BACK PAIN
     Dosage: UNK, TWO TIMES A DAY
     Route: 048
     Dates: start: 2012
  2. HYDROCODONE [Suspect]
     Indication: BACK PAIN
     Dosage: UNK, FOUR TIMES A DAY
     Dates: end: 2012
  3. HYDROCODONE [Suspect]
     Dosage: UNK, TWO TIMES A DAY
     Dates: start: 2012
  4. NORVASC [Concomitant]
     Indication: HYPERTENSION
     Dosage: UNK
  5. ATENOLOL [Concomitant]
     Indication: HYPERTENSION
     Dosage: UNK

REACTIONS (1)
  - Constipation [Not Recovered/Not Resolved]
